FAERS Safety Report 4484912-9 (Version None)
Quarter: 2004Q3

REPORT INFORMATION
  Report Type: 
  Country: None (occurrence: None)
  Receive Date: 20040921
  Receipt Date: 20030804
  Transmission Date: 20050211
  Serious: Yes (Life-Threatening)
  Sender: FDA-Public Use
  Company Number: 163-20785-03080277

PATIENT
  Age: 72 Year
  Sex: Male
  Weight: 76.2043 kg

DRUGS (9)
  1. THALOMID [Suspect]
     Indication: METASTASES TO BONE
     Dosage: 200 MG, DAILY, ORAL
     Route: 048
     Dates: start: 20030601, end: 20030101
  2. THALOMID [Suspect]
     Indication: METASTASES TO LUNG
     Dosage: 200 MG, DAILY, ORAL
     Route: 048
     Dates: start: 20030601, end: 20030101
  3. THALOMID [Suspect]
     Indication: METASTATIC NEOPLASM
     Dosage: 200 MG, DAILY, ORAL
     Route: 048
     Dates: start: 20030601, end: 20030101
  4. THALOMID [Suspect]
     Indication: RENAL CANCER METASTATIC
     Dosage: 200 MG, DAILY, ORAL
     Route: 048
     Dates: start: 20030601, end: 20030101
  5. THALOMID [Suspect]
     Indication: THYROID CANCER METASTATIC
     Dosage: 200 MG, DAILY, ORAL
     Route: 048
     Dates: start: 20030601, end: 20030101
  6. ZOMETA [Concomitant]
  7. SYNTHROID [Concomitant]
  8. FLOMOX (CEFCAPENE PIVOXIL HYDROCHLORIDE) [Concomitant]
  9. ZETIA [Concomitant]

REACTIONS (9)
  - ASTHENIA [None]
  - BRADYCARDIA [None]
  - CONDITION AGGRAVATED [None]
  - DECREASED APPETITE [None]
  - DISORIENTATION [None]
  - DIZZINESS [None]
  - DRY MOUTH [None]
  - DYSGEUSIA [None]
  - WEIGHT DECREASED [None]
